FAERS Safety Report 14853508 (Version 1)
Quarter: 2020Q3

REPORT INFORMATION
  Report Type: Spontaneous
  Country: US (occurrence: US)
  Receive Date: 20180507
  Receipt Date: 20180507
  Transmission Date: 20201104
  Serious: Yes (Other)
  Sender: FDA-Public Use
  Company Number: PHEH2018US016860

PATIENT
  Age: 41 Year
  Sex: Male

DRUGS (9)
  1. ETHAMBUTOL [Interacting]
     Active Substance: ETHAMBUTOL HYDROCHLORIDE
     Indication: PRODUCT USED FOR UNKNOWN INDICATION
     Dosage: UNK
     Route: 065
     Dates: start: 20170612, end: 20170826
  2. RIFABUTIN. [Interacting]
     Active Substance: RIFABUTIN
     Indication: PRODUCT USED FOR UNKNOWN INDICATION
     Dosage: UNK
     Route: 065
     Dates: start: 20170612, end: 20170615
  3. AMIKACIN. [Suspect]
     Active Substance: AMIKACIN
     Indication: PRODUCT USED FOR UNKNOWN INDICATION
     Dosage: UNK
     Route: 055
     Dates: start: 20171208
  4. RIFABUTIN. [Interacting]
     Active Substance: RIFABUTIN
     Dosage: UNK
     Route: 065
     Dates: start: 20170728, end: 20170928
  5. RIFABUTIN. [Interacting]
     Active Substance: RIFABUTIN
     Dosage: UNK
     Route: 065
     Dates: start: 20171108
  6. MOXIFLOXACIN. [Suspect]
     Active Substance: MOXIFLOXACIN
     Dosage: UNK
     Route: 065
     Dates: start: 20170826, end: 20171108
  7. MOXIFLOXACIN. [Suspect]
     Active Substance: MOXIFLOXACIN
     Indication: PRODUCT USED FOR UNKNOWN INDICATION
     Dosage: UNK
     Route: 065
     Dates: start: 20170615, end: 20170728
  8. AZITHROMYCIN 250 MG [Suspect]
     Active Substance: AZITHROMYCIN ANHYDROUS
     Indication: PRODUCT USED FOR UNKNOWN INDICATION
     Dosage: UNK
     Route: 065
     Dates: start: 20170612
  9. ETHAMBUTOL [Interacting]
     Active Substance: ETHAMBUTOL HYDROCHLORIDE
     Dosage: UNK
     Route: 065
     Dates: start: 20170928

REACTIONS (6)
  - Drug resistance [Unknown]
  - Drug eruption [Unknown]
  - Drug ineffective [Unknown]
  - Eczema [Unknown]
  - Rash [Unknown]
  - Myalgia [Unknown]

NARRATIVE: CASE EVENT DATE: 20170612
